FAERS Safety Report 6624296-0 (Version None)
Quarter: 2010Q1

REPORT INFORMATION
  Report Type: 
  Country: None (occurrence: None)
  Receive Date: 20100310
  Receipt Date: 20091103
  Transmission Date: 20100710
  Serious: No
  Sender: FDA-Public Use
  Company Number: US-BIOGENIDEC-2009BI035814

PATIENT
  Age: 28 Year
  Sex: Female

DRUGS (1)
  1. AVONEX [Suspect]
     Indication: MULTIPLE SCLEROSIS
     Route: 030
     Dates: start: 20000706, end: 20090929

REACTIONS (5)
  - BACK PAIN [None]
  - BALANCE DISORDER [None]
  - DYSPHEMIA [None]
  - MUSCULOSKELETAL PAIN [None]
  - SENSATION OF HEAVINESS [None]
